FAERS Safety Report 4950376-1 (Version None)
Quarter: 2006Q1

REPORT INFORMATION
  Report Type: 
  Country: None (occurrence: None)
  Receive Date: 20060322
  Receipt Date: 20060316
  Transmission Date: 20060701
  Serious: Yes (Other)
  Sender: FDA-Public Use
  Company Number: GB-AVENTIS-200612684GDDC

PATIENT
  Age: 72 Year
  Sex: Female

DRUGS (7)
  1. ARAVA [Suspect]
     Indication: RHEUMATOID ARTHRITIS
  2. BENDROFLUMETHIAZIDE [Concomitant]
     Dosage: DOSE: UNK
  3. SIMVASTATIN [Concomitant]
     Dosage: DOSE: UNK
  4. SOTALOL HCL [Concomitant]
     Dosage: DOSE: UNK
  5. CLOPIDOGREL [Concomitant]
     Dosage: DOSE: UNK
  6. CO-CODAMOL [Concomitant]
     Dosage: DOSE: UNK
  7. OMEPRAZOLE [Concomitant]
     Dosage: DOSE: UNK

REACTIONS (5)
  - CONTUSION [None]
  - MYOCARDIAL INFARCTION [None]
  - OEDEMA PERIPHERAL [None]
  - PAIN IN EXTREMITY [None]
  - RASH [None]
